FAERS Safety Report 7030154-2 (Version None)
Quarter: 2010Q4

REPORT INFORMATION
  Report Type: 
  Country: None (occurrence: None)
  Receive Date: 20101006
  Receipt Date: 20101001
  Transmission Date: 20110411
  Serious: Yes (Death, Other)
  Sender: FDA-Public Use
  Company Number: CA-GENZYME-CERZ-1001516

PATIENT

DRUGS (6)
  1. CEREZYME [Suspect]
     Indication: GAUCHER'S DISEASE
     Dosage: 34 U/KG, Q2W
     Route: 042
     Dates: start: 19970401, end: 20100913
  2. METHADONE [Concomitant]
     Indication: PAIN
     Dosage: 90 MG, TID
  3. NABILONE [Concomitant]
     Indication: ANTIEMETIC SUPPORTIVE CARE
     Dosage: 1 MG, BID
  4. SPIRONOLACTONE [Concomitant]
     Indication: DIURETIC THERAPY
     Dosage: 50 MG, QD
  5. LOTENSIN [Concomitant]
     Indication: PRODUCT USED FOR UNKNOWN INDICATION
     Dosage: 10 MG, QD
  6. CALCIUM [Concomitant]
     Indication: SUPPLEMENTATION THERAPY
     Dosage: 1000 MG, UNK

REACTIONS (2)
  - PANCREATIC PSEUDOCYST [None]
  - PANCREATITIS NECROTISING [None]
